FAERS Safety Report 14169561 (Version 2)
Quarter: 2018Q1

REPORT INFORMATION
  Report Type: Report from Study
  Country: None (occurrence: US)
  Receive Date: 20171108
  Receipt Date: 20180331
  Transmission Date: 20180508
  Serious: Yes (Hospitalization, Other)
  Sender: FDA-Public Use
  Company Number: US-ABBVIE-17K-163-1993855-00

PATIENT
  Age: 58 Year
  Sex: Female
  Weight: 77.18 kg

DRUGS (13)
  1. NEXIUM [Concomitant]
     Active Substance: ESOMEPRAZOLE MAGNESIUM
     Indication: PRODUCT USED FOR UNKNOWN INDICATION
  2. BREO ELLIPTA [Concomitant]
     Active Substance: FLUTICASONE FUROATE\VILANTEROL TRIFENATATE
     Indication: PRODUCT USED FOR UNKNOWN INDICATION
  3. HUMIRA [Suspect]
     Active Substance: ADALIMUMAB
     Route: 058
     Dates: start: 20161222
  4. FENOFIBRATE. [Concomitant]
     Active Substance: FENOFIBRATE
     Indication: BLOOD TRIGLYCERIDES INCREASED
  5. SYMBICORT [Concomitant]
     Active Substance: BUDESONIDE\FORMOTEROL FUMARATE DIHYDRATE
     Indication: PRODUCT USED FOR UNKNOWN INDICATION
  6. HUMIRA [Suspect]
     Active Substance: ADALIMUMAB
     Indication: COLITIS ULCERATIVE
     Dosage: LOADING DOSE
     Route: 058
     Dates: start: 20161208, end: 20161208
  7. LISINOPRIL. [Concomitant]
     Active Substance: LISINOPRIL
     Indication: HYPERTENSION
  8. LOSARTAN. [Concomitant]
     Active Substance: LOSARTAN
     Indication: HYPERTENSION
  9. CODEINE [Suspect]
     Active Substance: CODEINE
     Indication: PRODUCT USED FOR UNKNOWN INDICATION
     Route: 065
  10. PRAVASTATIN. [Concomitant]
     Active Substance: PRAVASTATIN
     Indication: BLOOD CHOLESTEROL INCREASED
  11. HUMIRA [Suspect]
     Active Substance: ADALIMUMAB
     Indication: CROHN^S DISEASE
     Dosage: LOADING DOSE
     Route: 058
     Dates: start: 20161124, end: 20161124
  12. PREDNISONE. [Concomitant]
     Active Substance: PREDNISONE
     Indication: PRODUCT USED FOR UNKNOWN INDICATION
  13. FLEXERIL [Concomitant]
     Active Substance: CYCLOBENZAPRINE HYDROCHLORIDE
     Indication: PRODUCT USED FOR UNKNOWN INDICATION

REACTIONS (24)
  - Urinary tract infection [Recovered/Resolved]
  - Feeling cold [Recovered/Resolved]
  - Bronchitis [Recovered/Resolved]
  - Abdominal pain upper [Unknown]
  - Fatigue [Recovered/Resolved]
  - Atypical pneumonia [Recovered/Resolved]
  - Crohn^s disease [Recovering/Resolving]
  - Blood pressure decreased [Recovered/Resolved]
  - Gastrointestinal pain [Recovered/Resolved]
  - Chronic obstructive pulmonary disease [Recovering/Resolving]
  - Chills [Recovered/Resolved]
  - Impaired gastric emptying [Recovering/Resolving]
  - Headache [Not Recovered/Not Resolved]
  - Pyelonephritis [Recovered/Resolved]
  - Fatigue [Recovered/Resolved]
  - Alopecia [Not Recovered/Not Resolved]
  - Escherichia sepsis [Recovered/Resolved]
  - Infection susceptibility increased [Unknown]
  - Influenza [Recovering/Resolving]
  - Wrong technique in product usage process [Recovered/Resolved]
  - Faeces hard [Recovering/Resolving]
  - Drug ineffective [Unknown]
  - Conjunctivitis [Not Recovered/Not Resolved]
  - Diarrhoea [Recovering/Resolving]

NARRATIVE: CASE EVENT DATE: 2016
